FAERS Safety Report 4495369-6 (Version None)
Quarter: 2004Q4

REPORT INFORMATION
  Report Type: 
  Country: None (occurrence: None)
  Receive Date: 20041108
  Receipt Date: 20041028
  Transmission Date: 20050328
  Serious: Yes (Hospitalization)
  Sender: FDA-Public Use
  Company Number: FR-BRISTOL-MYERS SQUIBB COMPANY-12755773

PATIENT
  Age: 67 Year
  Sex: Male

DRUGS (12)
  1. GLUCOPHAGE [Suspect]
     Indication: DIABETES MELLITUS
     Route: 048
     Dates: start: 20040823, end: 20040828
  2. CIFLOX [Suspect]
     Indication: WOUND INFECTION
     Dates: start: 20040828, end: 20040913
  3. VANCOMYCIN [Suspect]
     Indication: WOUND INFECTION
     Route: 048
     Dates: start: 20040828, end: 20040913
  4. ALDACTONE [Suspect]
     Route: 048
     Dates: end: 20040917
  5. TRIATEC [Suspect]
     Indication: ESSENTIAL HYPERTENSION
     Route: 048
     Dates: end: 20040913
  6. RIFAMPICIN [Suspect]
     Dates: start: 20040908, end: 20040908
  7. HYPERIUM [Concomitant]
  8. LANTUS [Concomitant]
  9. NOVORAPID [Concomitant]
  10. LASILIX [Concomitant]
  11. DILTIAZEM HCL [Concomitant]
  12. PREVISCAN [Concomitant]

REACTIONS (3)
  - DERMATITIS EXFOLIATIVE [None]
  - EOSINOPHILIA [None]
  - RENAL FAILURE ACUTE [None]
